FAERS Safety Report 7948423-8 (Version None)
Quarter: 2011Q4

REPORT INFORMATION
  Report Type: 
  Country: None (occurrence: None)
  Receive Date: 20111130
  Receipt Date: 20110613
  Transmission Date: 20120403
  Serious: Yes (Hospitalization, Other)
  Sender: FDA-Public Use
  Company Number: US-BAYER-2010-006360

PATIENT
  Age: 69 Year
  Sex: Male

DRUGS (3)
  1. NEXAVAR [Suspect]
     Indication: BONE NEOPLASM MALIGNANT
     Dosage: 400 MG, QD
     Dates: start: 20101128
  2. LOSARTAN POTASSIUM [Concomitant]
     Dosage: DAILY
  3. NEXAVAR [Suspect]
     Indication: SARCOMA
     Dosage: 400 MG, BID
     Route: 048
     Dates: start: 20101118

REACTIONS (8)
  - MOBILITY DECREASED [None]
  - BLOOD PRESSURE SYSTOLIC INCREASED [None]
  - PNEUMONIA [None]
  - RASH ERYTHEMATOUS [None]
  - GASTROOESOPHAGEAL REFLUX DISEASE [None]
  - SYNCOPE [None]
  - FATIGUE [None]
  - DYSPEPSIA [None]
